FAERS Safety Report 5914991-0 (Version None)
Quarter: 2008Q4

REPORT INFORMATION
  Report Type: 
  Country: None (occurrence: None)
  Receive Date: 20081010
  Receipt Date: 20081006
  Transmission Date: 20090506
  Serious: Yes (Hospitalization)
  Sender: FDA-Public Use
  Company Number: US-GENENTECH-222915

PATIENT
  Sex: Male
  Weight: 102.04 kg

DRUGS (8)
  1. ERLOTINIB [Suspect]
     Indication: SQUAMOUS CELL CARCINOMA
     Dosage: 100 MG, QD
     Route: 048
  2. AVASTIN [Suspect]
     Indication: SQUAMOUS CELL CARCINOMA
     Dosage: 10 MG/KG, Q2W
     Route: 042
     Dates: start: 20060220
  3. CISPLATIN [Concomitant]
     Indication: SQUAMOUS CELL CARCINOMA
     Dosage: 33 MG/M2, UNK
     Dates: end: 20060220
  4. RADIOTHERAPY [Concomitant]
     Indication: SQUAMOUS CELL CARCINOMA
  5. CIPROFLOXACIN [Concomitant]
     Indication: DRUG USE FOR UNKNOWN INDICATION
     Route: 042
  6. OXYCODONE HCL [Concomitant]
     Indication: PAIN
     Dosage: 5 MG, PRN
     Route: 048
  7. MIRALAX [Concomitant]
     Indication: CONSTIPATION
     Dosage: UNK, PRN
  8. PROTONIX [Concomitant]
     Dosage: 40 MG, QD

REACTIONS (3)
  - HYPOTENSION [None]
  - LEUKOCYTOCLASTIC VASCULITIS [None]
  - PYREXIA [None]
